FAERS Safety Report 8263338-6 (Version None)
Quarter: 2012Q2

REPORT INFORMATION
  Report Type: 
  Country: None (occurrence: None)
  Receive Date: 20120405
  Receipt Date: 20120330
  Transmission Date: 20120825
  Serious: Yes (Hospitalization)
  Sender: FDA-Public Use
  Company Number: US-FRI-1000029506

PATIENT
  Sex: Male

DRUGS (7)
  1. KLONOPIN [Concomitant]
     Indication: ANXIETY
  2. VIIBRYD [Suspect]
     Dosage: 40 MG
     Route: 048
     Dates: start: 20111003, end: 20111001
  3. KLONOPIN [Concomitant]
     Indication: INSOMNIA
  4. VIIBRYD [Suspect]
     Dosage: 20 MG
     Route: 048
     Dates: start: 20110926, end: 20111002
  5. VIIBRYD [Suspect]
     Dosage: 20 MG
     Route: 048
     Dates: start: 20111001
  6. VIIBRYD [Suspect]
     Indication: DEPRESSION
     Dosage: 10 MG
     Route: 048
     Dates: start: 20110919, end: 20110925
  7. ROPINIROLE [Concomitant]
     Indication: RESTLESS LEGS SYNDROME

REACTIONS (2)
  - ASTHMA [None]
  - FEELING JITTERY [None]
